FAERS Safety Report 19699222 (Version 3)
Quarter: 2021Q4

REPORT INFORMATION
  Report Type: Spontaneous
  Country: US (occurrence: None)
  Receive Date: 20210813
  Receipt Date: 20211125
  Transmission Date: 20220303
  Serious: Yes (Hospitalization, Other)
  Sender: FDA-Public Use
  Company Number: 2021A659625

PATIENT
  Age: 29 Year
  Sex: Female
  Weight: 81.2 kg

DRUGS (81)
  1. NEXIUM [Suspect]
     Active Substance: ESOMEPRAZOLE MAGNESIUM
     Indication: Gastrooesophageal reflux disease
     Route: 048
     Dates: start: 2015, end: 2020
  2. NEXIUM [Suspect]
     Active Substance: ESOMEPRAZOLE MAGNESIUM
     Indication: Gastrooesophageal reflux disease
     Route: 048
     Dates: start: 20150417
  3. NEXIUM [Suspect]
     Active Substance: ESOMEPRAZOLE MAGNESIUM
     Indication: Gastrooesophageal reflux disease
     Dosage: GENERIC
     Route: 065
     Dates: start: 20150326
  4. NEXIUM [Suspect]
     Active Substance: ESOMEPRAZOLE MAGNESIUM
     Indication: Gastrooesophageal reflux disease
     Route: 048
     Dates: start: 2015, end: 2016
  5. NEXIUM [Suspect]
     Active Substance: ESOMEPRAZOLE MAGNESIUM
     Indication: Gastrooesophageal reflux disease
     Dosage: GENERIC
     Route: 065
     Dates: start: 2015
  6. NEXIUM 24HR [Suspect]
     Active Substance: ESOMEPRAZOLE MAGNESIUM
     Indication: Gastrooesophageal reflux disease
     Route: 048
     Dates: start: 2015, end: 2020
  7. ACETAMINOPHEN\HYDROCODONE [Concomitant]
     Active Substance: ACETAMINOPHEN\HYDROCODONE
     Indication: Pain
     Route: 065
     Dates: start: 20160626
  8. ACETAMINOPHEN\HYDROCODONE [Concomitant]
     Active Substance: ACETAMINOPHEN\HYDROCODONE
     Indication: Pain
     Route: 065
     Dates: start: 2017
  9. ACETAMINOPHEN\HYDROCODONE [Concomitant]
     Active Substance: ACETAMINOPHEN\HYDROCODONE
     Indication: Pain
     Route: 065
     Dates: start: 2019
  10. AMOXICILLIN\CLAVULANIC ACID [Concomitant]
     Active Substance: AMOXICILLIN\CLAVULANIC ACID
     Indication: Infection
     Route: 065
     Dates: start: 20140718
  11. AMOXICILLIN\CLAVULANIC ACID [Concomitant]
     Active Substance: AMOXICILLIN\CLAVULANIC ACID
     Indication: Infection
     Route: 065
     Dates: start: 2015
  12. AMOXICILLIN\CLAVULANIC ACID [Concomitant]
     Active Substance: AMOXICILLIN\CLAVULANIC ACID
     Indication: Infection
     Route: 065
     Dates: start: 2019
  13. IBUPROFEN [Concomitant]
     Active Substance: IBUPROFEN
     Indication: Pyrexia
     Route: 065
     Dates: start: 2014
  14. IBUPROFEN [Concomitant]
     Active Substance: IBUPROFEN
     Indication: Pain
     Route: 065
     Dates: start: 2014
  15. IBUPROFEN [Concomitant]
     Active Substance: IBUPROFEN
     Indication: Pyrexia
     Route: 065
     Dates: start: 2019
  16. IBUPROFEN [Concomitant]
     Active Substance: IBUPROFEN
     Indication: Pain
     Route: 065
     Dates: start: 2019
  17. CEPHALEXIN [Concomitant]
     Active Substance: CEPHALEXIN
     Indication: Infection
     Route: 065
     Dates: start: 20140718
  18. NOVOLOG [Concomitant]
     Active Substance: INSULIN ASPART
     Route: 065
     Dates: start: 20140210
  19. MUPIROCIN [Concomitant]
     Active Substance: MUPIROCIN
     Indication: Skin infection
     Route: 065
     Dates: start: 2016
  20. LANTUS [Concomitant]
     Active Substance: INSULIN GLARGINE
     Indication: Diabetes mellitus
     Route: 065
     Dates: start: 2013, end: 2015
  21. LANTUS [Concomitant]
     Active Substance: INSULIN GLARGINE
     Indication: Diabetes mellitus
     Route: 065
     Dates: start: 2015, end: 2018
  22. GABAPENTIN [Concomitant]
     Active Substance: GABAPENTIN
     Indication: Seizure
     Route: 065
     Dates: start: 2013, end: 2014
  23. GABAPENTIN [Concomitant]
     Active Substance: GABAPENTIN
     Indication: Herpes zoster
     Route: 065
     Dates: start: 2013, end: 2014
  24. LOSARTAN [Concomitant]
     Active Substance: LOSARTAN
     Indication: Hypertension
     Route: 065
     Dates: start: 2013, end: 2014
  25. LOSARTAN [Concomitant]
     Active Substance: LOSARTAN
     Indication: Hypertension
     Route: 065
     Dates: start: 2017, end: 2019
  26. AMLODIPINE BESYLATE [Concomitant]
     Active Substance: AMLODIPINE BESYLATE
     Indication: Chest pain
     Route: 065
     Dates: start: 20200617
  27. AMLODIPINE BESYLATE [Concomitant]
     Active Substance: AMLODIPINE BESYLATE
     Indication: Hypertension
     Route: 065
     Dates: start: 20200617
  28. ATENOLOL [Concomitant]
     Active Substance: ATENOLOL
     Indication: Hypertension
     Route: 065
     Dates: start: 20200617
  29. ATENOLOL [Concomitant]
     Active Substance: ATENOLOL
     Indication: Chest pain
     Route: 065
     Dates: start: 20200617
  30. EPOGEN [Concomitant]
     Active Substance: ERYTHROPOIETIN
     Route: 065
     Dates: start: 20201209
  31. HECTOROL [Concomitant]
     Active Substance: DOXERCALCIFEROL
     Route: 065
     Dates: start: 20201209
  32. ZOFRAN [Concomitant]
     Active Substance: ONDANSETRON HYDROCHLORIDE
     Route: 065
     Dates: start: 20201209
  33. TRANDATE [Concomitant]
     Active Substance: LABETALOL HYDROCHLORIDE
     Route: 065
     Dates: start: 20201209
  34. ZITHROMAX [Concomitant]
     Active Substance: AZITHROMYCIN DIHYDRATE
     Route: 065
     Dates: start: 20020905
  35. ROBITUSSIN (GUAIFENESIN) [Concomitant]
     Active Substance: GUAIFENESIN
     Route: 065
     Dates: start: 20020905
  36. ALDARA [Concomitant]
     Active Substance: IMIQUIMOD
     Route: 065
     Dates: start: 20041117
  37. DARVOCET [Concomitant]
     Active Substance: ACETAMINOPHEN\PROPOXYPHENE HYDROCHLORIDE
     Route: 065
     Dates: start: 20050802
  38. CITRANATAL [Concomitant]
     Route: 065
     Dates: start: 20080815
  39. PANTOPRAZOLE [Concomitant]
     Active Substance: PANTOPRAZOLE
     Route: 065
     Dates: start: 20200708
  40. CLONIDINE [Concomitant]
     Active Substance: CLONIDINE
     Indication: Hypertension
     Route: 065
     Dates: start: 20200708
  41. CEFTRIAXONE [Concomitant]
     Active Substance: CEFTRIAXONE
     Route: 065
     Dates: start: 20200708
  42. ATORVASTATIN [Concomitant]
     Active Substance: ATORVASTATIN
     Route: 065
     Dates: start: 20191105
  43. CEFAZOLIN [Concomitant]
     Active Substance: CEFAZOLIN
     Route: 065
     Dates: start: 20191105
  44. CIPROFLOXACIN [Concomitant]
     Active Substance: CIPROFLOXACIN
     Indication: Infection
     Route: 065
     Dates: start: 20191105
  45. CIPROFLOXACIN [Concomitant]
     Active Substance: CIPROFLOXACIN
     Indication: Infection
     Route: 065
     Dates: start: 2015
  46. COZAAR [Concomitant]
     Active Substance: LOSARTAN POTASSIUM
     Indication: Hypertension
     Route: 065
     Dates: start: 20191105
  47. COZAAR [Concomitant]
     Active Substance: LOSARTAN POTASSIUM
     Indication: Hypertension
     Route: 065
     Dates: start: 2015
  48. DOXYCYCLINE HYCLATE [Concomitant]
     Active Substance: DOXYCYCLINE HYCLATE
     Indication: Bacterial infection
     Route: 065
     Dates: start: 2015
  49. DOXYCYCLINE HYCLATE [Concomitant]
     Active Substance: DOXYCYCLINE HYCLATE
     Indication: Bacterial infection
     Route: 065
     Dates: start: 2019
  50. FUROSEMIDE [Concomitant]
     Active Substance: FUROSEMIDE
     Indication: Swelling
     Route: 065
     Dates: start: 2014
  51. FUROSEMIDE [Concomitant]
     Active Substance: FUROSEMIDE
     Indication: Fluid retention
     Route: 065
     Dates: start: 2014
  52. HUMALOG [Concomitant]
     Active Substance: INSULIN LISPRO
     Indication: Diabetes mellitus
     Route: 065
     Dates: start: 2014
  53. INSULIN NOS [Concomitant]
     Active Substance: INSULIN NOS
     Indication: Diabetes mellitus
     Route: 065
     Dates: start: 2013, end: 2014
  54. INSULIN NOS [Concomitant]
     Active Substance: INSULIN NOS
     Indication: Diabetes mellitus
     Route: 065
     Dates: start: 2016, end: 2017
  55. LEVOFLOXACIN [Concomitant]
     Active Substance: LEVOFLOXACIN
     Indication: Infection
     Route: 065
     Dates: start: 2017
  56. LISINOPRIL [Concomitant]
     Active Substance: LISINOPRIL
     Indication: Hypertension
     Route: 065
     Dates: start: 2018
  57. LISINOPRIL [Concomitant]
     Active Substance: LISINOPRIL
     Indication: Cardiac failure
     Route: 065
     Dates: start: 2018
  58. LYRICA [Concomitant]
     Active Substance: PREGABALIN
     Indication: Neuralgia
     Route: 065
     Dates: start: 2015
  59. LYRICA [Concomitant]
     Active Substance: PREGABALIN
     Indication: Myalgia
     Route: 065
     Dates: start: 2015
  60. MECLIZINE [Concomitant]
     Active Substance: MECLIZINE HYDROCHLORIDE
     Indication: Motion sickness
     Route: 065
     Dates: start: 2015
  61. MECLIZINE [Concomitant]
     Active Substance: MECLIZINE HYDROCHLORIDE
     Indication: Vertigo
     Route: 065
     Dates: start: 2015
  62. METOCLOPRAMIDE [Concomitant]
     Active Substance: METOCLOPRAMIDE
     Indication: Gastrooesophageal reflux disease
     Route: 065
     Dates: start: 2020
  63. METOCLOPRAMIDE [Concomitant]
     Active Substance: METOCLOPRAMIDE
     Indication: Impaired gastric emptying
     Route: 065
     Dates: start: 2020
  64. NEOMYCIN [Concomitant]
     Active Substance: NEOMYCIN
     Indication: Infection
     Route: 065
     Dates: start: 2015
  65. NIFEDIPINE [Concomitant]
     Active Substance: NIFEDIPINE
     Indication: Hypertension
     Route: 065
     Dates: start: 2018
  66. NIFEDIPINE [Concomitant]
     Active Substance: NIFEDIPINE
     Indication: Chest pain
     Route: 065
     Dates: start: 2018
  67. NORCO [Concomitant]
     Active Substance: ACETAMINOPHEN\HYDROCODONE BITARTRATE
     Indication: Pain
     Route: 065
     Dates: start: 2015
  68. ONDANSETRON [Concomitant]
     Active Substance: ONDANSETRON
     Indication: Nausea
     Route: 065
     Dates: start: 2015
  69. ONDANSETRON [Concomitant]
     Active Substance: ONDANSETRON
     Indication: Vomiting
     Route: 065
     Dates: start: 2015
  70. PERCOCET [Concomitant]
     Active Substance: ACETAMINOPHEN\OXYCODONE HYDROCHLORIDE
     Indication: Pain
     Route: 065
     Dates: start: 2015
  71. RESTORIL [Concomitant]
     Active Substance: TEMAZEPAM
     Indication: Insomnia
     Route: 065
     Dates: start: 2015
  72. SULFAMETHOXAZOLE [Concomitant]
     Active Substance: SULFAMETHOXAZOLE
     Indication: Infection
     Route: 065
     Dates: start: 2016
  73. TRAMADOL [Concomitant]
     Active Substance: TRAMADOL
     Indication: Pain
     Route: 065
     Dates: start: 2017
  74. VALIUM [Concomitant]
     Active Substance: DIAZEPAM
     Indication: Anxiety
     Route: 065
     Dates: start: 2015
  75. VALIUM [Concomitant]
     Active Substance: DIAZEPAM
     Indication: Muscle spasms
     Route: 065
     Dates: start: 2015
  76. VALIUM [Concomitant]
     Active Substance: DIAZEPAM
     Indication: Seizure
     Route: 065
     Dates: start: 2015
  77. ZOLPIDEM TARTRATE [Concomitant]
     Active Substance: ZOLPIDEM TARTRATE
     Indication: Insomnia
     Route: 065
     Dates: start: 2015
  78. ZOLPIDEM TARTRATE [Concomitant]
     Active Substance: ZOLPIDEM TARTRATE
     Indication: Insomnia
     Route: 065
     Dates: start: 2017
  79. VITAMINS [Concomitant]
     Active Substance: VITAMINS
     Indication: Routine health maintenance
     Route: 065
     Dates: start: 2018, end: 2019
  80. FAMOTIDINE [Concomitant]
     Active Substance: FAMOTIDINE
     Dates: start: 201911
  81. FAMOTIDINE [Concomitant]
     Active Substance: FAMOTIDINE
     Dates: start: 201911

REACTIONS (7)
  - Acute kidney injury [Not Recovered/Not Resolved]
  - Chronic kidney disease [Unknown]
  - End stage renal disease [Not Recovered/Not Resolved]
  - Nephrogenic anaemia [Unknown]
  - Chronic kidney disease-mineral and bone disorder [Unknown]
  - Hyperparathyroidism secondary [Unknown]
  - Renal failure [Unknown]

NARRATIVE: CASE EVENT DATE: 20150101
